FAERS Safety Report 6424263-6 (Version None)
Quarter: 2009Q4

REPORT INFORMATION
  Report Type: 
  Country: None (occurrence: None)
  Receive Date: 20091102
  Receipt Date: 20091020
  Transmission Date: 20100525
  Serious: Yes (Hospitalization)
  Sender: FDA-Public Use
  Company Number: US-WATSON-2009-08968

PATIENT
  Age: 58 Year
  Sex: Female

DRUGS (1)
  1. NAFCILLIN SODIUM (WATSON LABORATORIES) [Suspect]
     Indication: ABSCESS
     Dosage: 2 GRAMS Q 4 HOURS
     Route: 042

REACTIONS (1)
  - HYPOKALAEMIA [None]
